FAERS Safety Report 4835835-4 (Version None)
Quarter: 2005Q4

REPORT INFORMATION
  Report Type: 
  Country: None (occurrence: None)
  Receive Date: 20051117
  Receipt Date: 20051108
  Transmission Date: 20060501
  Serious: Yes (Hospitalization)
  Sender: FDA-Public Use
  Company Number: 200513861GDS

PATIENT
  Age: 73 Year
  Sex: Female

DRUGS (1)
  1. ASPIRIN [Suspect]

REACTIONS (6)
  - ABDOMINAL PAIN UPPER [None]
  - CEREBRAL INFARCTION [None]
  - HEPATIC CYST RUPTURED [None]
  - INTRA-ABDOMINAL HAEMORRHAGE [None]
  - PERITONITIS [None]
  - WHITE BLOOD CELL COUNT INCREASED [None]
